FAERS Safety Report 10205232 (Version 1)
Quarter: 2014Q2

REPORT INFORMATION
  Report Type: Spontaneous
  Country: HU (occurrence: HU)
  Receive Date: 20140529
  Receipt Date: 20140529
  Transmission Date: 20141212
  Serious: Yes (Life-Threatening, Hospitalization, Other)
  Sender: FDA-Public Use
  Company Number: HU-TEVA-483223ISR

PATIENT
  Age: 68 Year
  Sex: Female

DRUGS (2)
  1. CLOPIDOGREL [Suspect]
     Route: 048
  2. WARFARIN [Suspect]
     Route: 048

REACTIONS (6)
  - Haematuria [Recovered/Resolved]
  - Cystitis [Recovered/Resolved]
  - Angina pectoris [Recovered/Resolved]
  - Haematoma [Recovered/Resolved]
  - Renal impairment [Recovered/Resolved]
  - International normalised ratio increased [Recovered/Resolved]
